FAERS Safety Report 13993019 (Version 2)
Quarter: 2019Q4

REPORT INFORMATION
  Report Type: Report from Study
  Country: CO (occurrence: CO)
  Receive Date: 20170920
  Receipt Date: 20191217
  Transmission Date: 20200122
  Serious: Yes (Other)
  Sender: FDA-Public Use
  Company Number: CO-JNJFOC-20170813507

PATIENT
  Age: 82 Year
  Sex: Male
  Weight: 103 kg

DRUGS (1)
  1. IMBRUVICA [Suspect]
     Active Substance: IBRUTINIB
     Indication: CHRONIC LYMPHOCYTIC LEUKAEMIA
     Route: 048
     Dates: start: 20170701, end: 20170829

REACTIONS (4)
  - Haemoglobin decreased [Recovering/Resolving]
  - Inflammation [Not Recovered/Not Resolved]
  - Drug diversion [Unknown]
  - Toxoplasmosis [Recovering/Resolving]

NARRATIVE: CASE EVENT DATE: 20170809
